FAERS Safety Report 9581244 (Version 1)
Quarter: 2013Q4

REPORT INFORMATION
  Report Type: Spontaneous
  Country: US (occurrence: US)
  Receive Date: 20131002
  Receipt Date: 20131002
  Transmission Date: 20140711
  Serious: Yes (Hospitalization)
  Sender: FDA-Public Use
  Company Number: US-BAYER-2013-118720

PATIENT
  Sex: Female

DRUGS (2)
  1. BAYER ASPIRIN REGIMEN ADULT LOW STRENGTH [Suspect]
  2. NIASPAN [Suspect]
     Dosage: DOSE: 1200MG

REACTIONS (2)
  - Feeling abnormal [None]
  - Burning sensation [None]
